FAERS Safety Report 20997891 (Version 1)
Quarter: 2022Q2

REPORT INFORMATION
  Report Type: Other
  Country: CZ (occurrence: None)
  Receive Date: 20220623
  Receipt Date: 20220623
  Transmission Date: 20220720
  Serious: Yes (Other)
  Sender: FDA-Public Use
  Company Number: CZ-ROCHE-3119197

PATIENT
  Age: 68 Year
  Sex: Male

DRUGS (7)
  1. BEVACIZUMAB [Suspect]
     Active Substance: BEVACIZUMAB
     Indication: Colorectal cancer metastatic
     Dosage: 25 CYCLES
     Route: 042
     Dates: start: 2011, end: 201607
  2. LEUCOVORIN [Suspect]
     Active Substance: LEUCOVORIN
     Indication: Colorectal cancer metastatic
     Dosage: 6 CYCLES
     Route: 065
     Dates: start: 2011, end: 201607
  3. FLUOROURACIL [Suspect]
     Active Substance: FLUOROURACIL
     Indication: Colorectal cancer metastatic
     Dosage: 25 CYCLES
     Route: 065
     Dates: start: 2011, end: 201607
  4. IRINOTECAN [Suspect]
     Active Substance: IRINOTECAN
     Indication: Colorectal cancer metastatic
     Route: 065
     Dates: start: 2011, end: 201607
  5. TIPIRACIL HYDROCHLORIDE\TRIFLURIDINE [Concomitant]
     Active Substance: TIPIRACIL HYDROCHLORIDE\TRIFLURIDINE
  6. AFLIBERCEPT [Concomitant]
     Active Substance: AFLIBERCEPT
  7. REGORAFENIB [Concomitant]
     Active Substance: REGORAFENIB
     Dates: start: 202004

REACTIONS (2)
  - Diabetic metabolic decompensation [Unknown]
  - Hypertension [Unknown]
